FAERS Safety Report 8005786-5 (Version None)
Quarter: 2011Q4

REPORT INFORMATION
  Report Type: 
  Country: None (occurrence: None)
  Receive Date: 20111223
  Receipt Date: 20111220
  Transmission Date: 20120403
  Serious: Yes (Hospitalization)
  Sender: FDA-Public Use
  Company Number: US-ASTRAZENECA-2011SE77364

PATIENT
  Age: 69 Year
  Sex: Female

DRUGS (3)
  1. CRESTOR [Suspect]
     Route: 048
  2. NEXIUM [Suspect]
     Route: 048
  3. BLOOD PRESSURE MEDICINE [Suspect]
     Route: 065

REACTIONS (4)
  - HYPERSENSITIVITY [None]
  - HEADACHE [None]
  - RASH [None]
  - BLOOD PRESSURE ABNORMAL [None]
